FAERS Safety Report 5133262-6 (Version None)
Quarter: 2006Q4

REPORT INFORMATION
  Report Type: 
  Country: None (occurrence: None)
  Receive Date: 20061018
  Receipt Date: 20061003
  Transmission Date: 20070319
  Serious: Yes (Life-Threatening, Hospitalization, Other)
  Sender: FDA-Public Use
  Company Number: 2006EU002569

PATIENT
  Age: 23 Year
  Sex: Female
  Weight: 60 kg

DRUGS (4)
  1. PROGRAF [Suspect]
     Indication: HEART TRANSPLANT
     Dosage: ORAL; SEE IMAGE
     Route: 048
     Dates: start: 20010205, end: 20030303
  2. PROGRAF [Suspect]
     Indication: HEART TRANSPLANT
     Dosage: ORAL; SEE IMAGE
     Route: 048
     Dates: start: 20040301
  3. IMUREL [Concomitant]
  4. SOLUPRED (PREDNISOLONE SODIUM SULFOBENZOATE) [Concomitant]

REACTIONS (5)
  - CORONARY ARTERY DISEASE [None]
  - DRUG EXPOSURE DURING PREGNANCY [None]
  - GRAFT THROMBOSIS [None]
  - PREGNANCY [None]
  - VASCULAR GRAFT COMPLICATION [None]
